FAERS Safety Report 6534369-9 (Version None)
Quarter: 2010Q1

REPORT INFORMATION
  Report Type: 
  Country: None (occurrence: None)
  Receive Date: 20100112
  Receipt Date: 20100104
  Transmission Date: 20100710
  Serious: Yes (Death)
  Sender: FDA-Public Use
  Company Number: US-PFIZER INC-2010000944

PATIENT
  Age: 39 Year
  Sex: Male

DRUGS (5)
  1. PREGABALIN [Suspect]
  2. HYDROXYZINE PAMOATE [Suspect]
  3. ESZOPICLONE [Suspect]
  4. ACETAMINOPHEN AND HYDROCODONE BITARTRATE [Suspect]
  5. PROMETHAZINE [Suspect]

REACTIONS (3)
  - CARDIAC ARREST [None]
  - COMPLETED SUICIDE [None]
  - RESPIRATORY ARREST [None]
